FAERS Safety Report 14385222 (Version 2)
Quarter: 2019Q4

REPORT INFORMATION
  Report Type: Spontaneous
  Country: US (occurrence: US)
  Receive Date: 20180115
  Receipt Date: 20191202
  Transmission Date: 20200122
  Serious: Yes (Other)
  Sender: FDA-Public Use
  Company Number: US-SA-2016SA236528

PATIENT
  Age: 51 Year
  Sex: Female
  Weight: 75.65 kg

DRUGS (19)
  1. CARAFATE [Concomitant]
     Active Substance: SUCRALFATE
     Dosage: 2 DF,TID
     Route: 065
     Dates: start: 20060914, end: 20130424
  2. CLINDAGEL [Concomitant]
     Active Substance: CLINDAMYCIN PHOSPHATE
     Dosage: UNK UNK,UNK
     Route: 065
     Dates: start: 20130812
  3. CARBOPLATIN. [Concomitant]
     Active Substance: CARBOPLATIN
     Dosage: 570 MG,QD
     Route: 042
     Dates: start: 20130703, end: 20130923
  4. HERCEPTIN [Concomitant]
     Active Substance: TRASTUZUMAB
     Dosage: 500 MG,QD
     Route: 042
     Dates: start: 20130703, end: 20140617
  5. PALONOSETRON HYDROCHLORIDE. [Concomitant]
     Active Substance: PALONOSETRON HYDROCHLORIDE
     Dosage: .25 MG,QD
     Route: 042
     Dates: start: 20130703, end: 20130923
  6. TAXOTERE [Suspect]
     Active Substance: DOCETAXEL
     Dosage: 143 MG,Q3W
     Route: 042
     Dates: start: 20130923, end: 20130923
  7. DEXAMETHASONE. [Concomitant]
     Active Substance: DEXAMETHASONE
     Dosage: 4 MG,UNK
     Route: 048
     Dates: start: 20130812, end: 20150608
  8. DEXAMETHASONE SODIUM PHOSPHATE. [Concomitant]
     Active Substance: DEXAMETHASONE SODIUM PHOSPHATE
     Dosage: 10 MG,QD
     Route: 042
     Dates: start: 20130703, end: 20130923
  9. PARACETAMOL [Concomitant]
     Active Substance: ACETAMINOPHEN
     Dosage: 650 MG,QD
     Route: 048
     Dates: start: 20130703, end: 20140617
  10. XANAX [Concomitant]
     Active Substance: ALPRAZOLAM
     Dosage: UNK UNK,UNK
     Route: 065
     Dates: start: 2008, end: 2016
  11. APREPITANT. [Concomitant]
     Active Substance: APREPITANT
     Dosage: 150 MG,QD
     Route: 042
     Dates: start: 20130722, end: 20130923
  12. SODIUM CHLORIDE. [Concomitant]
     Active Substance: SODIUM CHLORIDE
     Dosage: 250 ML,QD
     Route: 042
     Dates: start: 20130703, end: 20130923
  13. PROMETHAZINE HYDROCHLORIDE. [Concomitant]
     Active Substance: PROMETHAZINE HYDROCHLORIDE
     Dosage: UNK UNK,UNK
     Route: 065
     Dates: start: 20130610
  14. TAXOTERE [Suspect]
     Active Substance: DOCETAXEL
     Indication: BREAST CANCER FEMALE
     Dosage: 143 MG,Q3W
     Route: 042
     Dates: start: 20130703, end: 20130703
  15. OMEPRAZOLE. [Concomitant]
     Active Substance: OMEPRAZOLE
     Dosage: 40 MG,QD
     Route: 042
     Dates: start: 2008, end: 20130424
  16. HEPARIN [Concomitant]
     Active Substance: HEPARIN SODIUM
     Dosage: 5 ML,QD
     Route: 065
     Dates: start: 20130712, end: 20140805
  17. ALPRAZOLAM. [Concomitant]
     Active Substance: ALPRAZOLAM
     Dosage: UNK UNK,UNK
     Route: 065
     Dates: start: 20130701
  18. ONDANSETRON HYDROCHLORIDE. [Concomitant]
     Active Substance: ONDANSETRON HYDROCHLORIDE
     Dosage: UNK UNK,UNK
     Route: 065
     Dates: start: 20130610
  19. BENADRYL [Concomitant]
     Active Substance: DIPHENHYDRAMINE HYDROCHLORIDE
     Dosage: 25 MG,QD
     Route: 048
     Dates: start: 20130703, end: 20140617

REACTIONS (6)
  - Alopecia [Not Recovered/Not Resolved]
  - Pain [Unknown]
  - Emotional distress [Unknown]
  - Anxiety [Unknown]
  - Psychological trauma [Unknown]
  - Impaired quality of life [Unknown]

NARRATIVE: CASE EVENT DATE: 20130812
